FAERS Safety Report 9924846 (Version 2)
Quarter: 2014Q1

REPORT INFORMATION
  Report Type: Spontaneous
  Country: ES (occurrence: ES)
  Receive Date: 20140226
  Receipt Date: 20140305
  Transmission Date: 20141002
  Serious: Yes (Other)
  Sender: FDA-Public Use
  Company Number: ES-AMGEN-ESPSP2014012995

PATIENT
  Sex: Female

DRUGS (2)
  1. PROLIA [Suspect]
     Indication: PRODUCT USED FOR UNKNOWN INDICATION
     Dosage: UNK
     Route: 065
  2. COROPRES                           /00984501/ [Concomitant]
     Indication: HYPERTENSION

REACTIONS (8)
  - Eye swelling [Unknown]
  - Local swelling [Unknown]
  - Lacrimation increased [Unknown]
  - Musculoskeletal stiffness [Unknown]
  - Swelling face [Unknown]
  - Sensation of heaviness [Unknown]
  - Limb discomfort [Unknown]
  - Pain in extremity [Unknown]
